FAERS Safety Report 14177572 (Version 2)
Quarter: 2018Q3

REPORT INFORMATION
  Report Type: Spontaneous
  Country: US (occurrence: US)
  Receive Date: 20171110
  Receipt Date: 20180917
  Transmission Date: 20181010
  Serious: Yes (Other)
  Sender: FDA-Public Use
  Company Number: PHEH2017US036424

PATIENT
  Sex: Female

DRUGS (4)
  1. AMIODARONE ZYDUS [Suspect]
     Active Substance: AMIODARONE
     Indication: ATRIAL FIBRILLATION
     Route: 065
  2. AMIODARONE TEVA [Suspect]
     Active Substance: AMIODARONE
     Indication: ATRIAL FIBRILLATION
     Route: 065
  3. AMIODARONE HYDROCHLORIDE. [Suspect]
     Active Substance: AMIODARONE HYDROCHLORIDE
     Indication: ATRIAL FIBRILLATION
     Dosage: UNK
     Route: 048
  4. AMIODARONE HYDROCHLORIDE. [Suspect]
     Active Substance: AMIODARONE HYDROCHLORIDE
     Indication: ATRIAL FIBRILLATION
     Route: 065

REACTIONS (17)
  - Syncope [Unknown]
  - Cataract [Unknown]
  - Haemorrhage [Unknown]
  - Asthenia [Unknown]
  - Cough [Unknown]
  - Interstitial lung disease [Unknown]
  - Fatigue [Unknown]
  - Vitreous floaters [Unknown]
  - Dyspnoea [Unknown]
  - Blindness unilateral [Unknown]
  - Eye injury [Unknown]
  - Blindness [Unknown]
  - Glaucoma [Unknown]
  - Oedema [Unknown]
  - Alopecia [Unknown]
  - Dizziness [Unknown]
  - Product use in unapproved indication [Unknown]

NARRATIVE: CASE EVENT DATE: 201407
